FAERS Safety Report 23276560 (Version 2)
Quarter: 2023Q4

REPORT INFORMATION
  Report Type: Report from Study
  Country: US (occurrence: US)
  Receive Date: 20231208
  Receipt Date: 20231220
  Transmission Date: 20240109
  Serious: Yes (Hospitalization, Other)
  Sender: FDA-Public Use
  Company Number: US-SERVIER-S23013963

PATIENT

DRUGS (11)
  1. CALASPARGASE PEGOL [Suspect]
     Active Substance: CALASPARGASE PEGOL
     Indication: T-cell type acute leukaemia
     Dosage: 3075 IU, D5
     Route: 042
     Dates: start: 20231016, end: 20231111
  2. CALASPARGASE PEGOL [Suspect]
     Active Substance: CALASPARGASE PEGOL
     Dosage: 3075 IU, ONE DOSE
     Route: 042
     Dates: start: 20231210, end: 20231210
  3. CYCLOPHOSPHAMIDE [Suspect]
     Active Substance: CYCLOPHOSPHAMIDE
     Indication: T-cell type acute leukaemia
     Dosage: 300 MG/M2, BID, OVER 3 HOURS EVERY 12 H ON DAYS 1-3
     Route: 042
     Dates: start: 20231107, end: 20231110
  4. VINCRISTINE SULFATE [Suspect]
     Active Substance: VINCRISTINE SULFATE
     Indication: T-cell type acute leukaemia
     Dosage: 2 MG, D4, D11
     Route: 042
     Dates: start: 20231110, end: 20231110
  5. DOXORUBICIN [Suspect]
     Active Substance: DOXORUBICIN
     Indication: T-cell type acute leukaemia
     Dosage: 50 MG/M2, D4
     Route: 042
     Dates: start: 20231110, end: 20231110
  6. DEXAMETHASONE [Suspect]
     Active Substance: DEXAMETHASONE
     Indication: T-cell type acute leukaemia
     Dosage: 40 MG, QD, ON DAYS 1-4 AND DAYS 11-14
     Route: 042
     Dates: start: 20231107, end: 20231110
  7. NEUPOGEN [Suspect]
     Active Substance: FILGRASTIM
     Indication: T-cell type acute leukaemia
     Dosage: UNK
     Route: 065
     Dates: start: 20231114, end: 20231114
  8. CYTARABINE [Suspect]
     Active Substance: CYTARABINE
     Indication: T-cell type acute leukaemia
     Dosage: UNK
     Route: 037
     Dates: start: 20231107, end: 20231107
  9. METHOTREXATE [Suspect]
     Active Substance: METHOTREXATE
     Indication: T-cell type acute leukaemia
     Dosage: UNK
     Route: 037
     Dates: start: 20231110, end: 20231110
  10. CIPROFLOXACIN [Concomitant]
     Active Substance: CIPROFLOXACIN
     Indication: Prophylaxis
     Dosage: UNK
     Route: 065
  11. BACTRIM [Concomitant]
     Active Substance: SULFAMETHOXAZOLE\TRIMETHOPRIM
     Indication: Prophylaxis
     Dosage: UNK
     Route: 065

REACTIONS (4)
  - Back pain [Recovered/Resolved]
  - Groin pain [Recovered/Resolved]
  - Pain in extremity [Recovered/Resolved]
  - Febrile neutropenia [Unknown]

NARRATIVE: CASE EVENT DATE: 20231123
